FAERS Safety Report 19017527 (Version 1)
Quarter: 2021Q1

REPORT INFORMATION
  Report Type: Spontaneous
  Country: US (occurrence: US)
  Receive Date: 20210316
  Receipt Date: 20210316
  Transmission Date: 20210420
  Serious: Yes (Hospitalization, Other)
  Sender: FDA-Public Use
  Company Number: US-PURDUE-USA-2021-0234099

PATIENT
  Age: 78 Year
  Sex: Male

DRUGS (1)
  1. THEOPHYLLINE ER TABLET (040086, 087571 RHODES) [Suspect]
     Active Substance: THEOPHYLLINE ANHYDROUS
     Indication: CHRONIC OBSTRUCTIVE PULMONARY DISEASE
     Dosage: 400 MG, DAILY
     Route: 065

REACTIONS (11)
  - Mental status changes [Unknown]
  - Sinus tachycardia [Recovered/Resolved]
  - Atrial fibrillation [Unknown]
  - Hypokalaemia [Unknown]
  - Respiratory failure [Unknown]
  - Tachypnoea [Unknown]
  - Hypotension [Recovered/Resolved]
  - Blood creatinine increased [Unknown]
  - Troponin I increased [Unknown]
  - Blood lactate dehydrogenase increased [Unknown]
  - Toxicity to various agents [Unknown]
